FAERS Safety Report 4613295-6 (Version None)
Quarter: 2005Q1

REPORT INFORMATION
  Report Type: 
  Country: None (occurrence: None)
  Receive Date: 20050315
  Receipt Date: 20050307
  Transmission Date: 20050727
  Serious: Yes (Hospitalization)
  Sender: FDA-Public Use
  Company Number: 2005CG00481

PATIENT
  Age: 41 Year
  Sex: Female

DRUGS (4)
  1. XYLOCAINE [Suspect]
     Indication: ANAESTHESIA
     Dates: start: 20050101, end: 20050101
  2. PROPOFOL [Suspect]
     Indication: INDUCTION OF ANAESTHESIA
     Dates: start: 20050101, end: 20050101
  3. NIMBEX [Suspect]
     Indication: INDUCTION OF ANAESTHESIA
     Dates: start: 20050101, end: 20050101
  4. ULTIVA [Suspect]
     Indication: INDUCTION OF ANAESTHESIA
     Dates: start: 20050101, end: 20050101

REACTIONS (4)
  - ANAESTHETIC COMPLICATION [None]
  - ERYTHEMA [None]
  - SHOCK [None]
  - SKIN TEST POSITIVE [None]
